FAERS Safety Report 9387669 (Version 1)
Quarter: 2013Q3

REPORT INFORMATION
  Report Type: Spontaneous
  Country: JP (occurrence: JP)
  Receive Date: 20130708
  Receipt Date: 20130708
  Transmission Date: 20140515
  Serious: Yes (Other)
  Sender: FDA-Public Use
  Company Number: JP-MYLANLABS-2013S1014357

PATIENT
  Age: 60 Year
  Sex: Male

DRUGS (29)
  1. CYCLOPHOSPHAMIDE [Suspect]
     Indication: FOLLICLE CENTRE LYMPHOMA, FOLLICULAR GRADE I, II, III STAGE III
     Dosage: 6 CYCLES OF CHOP CHEMOTHERAPY
     Route: 065
  2. CYCLOPHOSPHAMIDE [Suspect]
     Indication: FOLLICLE CENTRE LYMPHOMA, FOLLICULAR GRADE I, II, III RECURRENT
     Dosage: 6 CYCLES OF CHOP CHEMOTHERAPY
     Route: 065
  3. CYCLOPHOSPHAMIDE [Suspect]
     Indication: FOLLICLE CENTRE LYMPHOMA, FOLLICULAR GRADE I, II, III STAGE III
     Dosage: 6 CYCLES OF R-CHOP CHEMOTHERAPY
     Route: 065
  4. CYCLOPHOSPHAMIDE [Suspect]
     Indication: FOLLICLE CENTRE LYMPHOMA, FOLLICULAR GRADE I, II, III RECURRENT
     Dosage: 6 CYCLES OF R-CHOP CHEMOTHERAPY
     Route: 065
  5. CYCLOPHOSPHAMIDE [Suspect]
     Indication: FOLLICLE CENTRE LYMPHOMA, FOLLICULAR GRADE I, II, III STAGE III
     Dosage: PART OF CAMP-C THERAPY
     Route: 065
  6. CYCLOPHOSPHAMIDE [Suspect]
     Indication: FOLLICLE CENTRE LYMPHOMA, FOLLICULAR GRADE I, II, III RECURRENT
     Dosage: PART OF CAMP-C THERAPY
     Route: 065
  7. DOXORUBICIN [Suspect]
     Indication: FOLLICLE CENTRE LYMPHOMA, FOLLICULAR GRADE I, II, III STAGE III
     Dosage: 6 CYCLES OF CHOP CHEMOTHERAPY
     Route: 065
  8. DOXORUBICIN [Suspect]
     Indication: FOLLICLE CENTRE LYMPHOMA, FOLLICULAR GRADE I, II, III RECURRENT
     Dosage: 6 CYCLES OF CHOP CHEMOTHERAPY
     Route: 065
  9. DOXORUBICIN [Suspect]
     Indication: FOLLICLE CENTRE LYMPHOMA, FOLLICULAR GRADE I, II, III STAGE III
     Dosage: 6 CYCLES OF R-CHOP CHEMOTHERAPY
     Route: 065
  10. DOXORUBICIN [Suspect]
     Indication: FOLLICLE CENTRE LYMPHOMA, FOLLICULAR GRADE I, II, III RECURRENT
     Dosage: 6 CYCLES OF R-CHOP CHEMOTHERAPY
     Route: 065
  11. VINCRISTINE [Suspect]
     Indication: FOLLICLE CENTRE LYMPHOMA, FOLLICULAR GRADE I, II, III STAGE III
     Dosage: 6 CYCLES OF CHOP CHEMOTHERAPY
     Route: 065
  12. VINCRISTINE [Suspect]
     Indication: FOLLICLE CENTRE LYMPHOMA, FOLLICULAR GRADE I, II, III RECURRENT
     Dosage: 6 CYCLES OF CHOP CHEMOTHERAPY
     Route: 065
  13. VINCRISTINE [Suspect]
     Indication: FOLLICLE CENTRE LYMPHOMA, FOLLICULAR GRADE I, II, III STAGE III
     Dosage: 6 CYCLES OF R-CHOP CHEMOTHERAPY
     Route: 065
  14. VINCRISTINE [Suspect]
     Indication: FOLLICLE CENTRE LYMPHOMA, FOLLICULAR GRADE I, II, III RECURRENT
     Dosage: 6 CYCLES OF R-CHOP CHEMOTHERAPY
     Route: 065
  15. PREDNISOLONE [Suspect]
     Indication: FOLLICLE CENTRE LYMPHOMA, FOLLICULAR GRADE I, II, III STAGE III
     Dosage: 6 CYCLES OF CHOP CHEMOTHERAPY
     Route: 065
  16. PREDNISOLONE [Suspect]
     Indication: FOLLICLE CENTRE LYMPHOMA, FOLLICULAR GRADE I, II, III RECURRENT
     Dosage: 6 CYCLES OF CHOP CHEMOTHERAPY
     Route: 065
  17. PREDNISOLONE [Suspect]
     Indication: FOLLICLE CENTRE LYMPHOMA, FOLLICULAR GRADE I, II, III STAGE III
     Dosage: 6 CYCLES OF R-CHOP CHEMOTHERAPY
     Route: 065
  18. PREDNISOLONE [Suspect]
     Indication: FOLLICLE CENTRE LYMPHOMA, FOLLICULAR GRADE I, II, III RECURRENT
     Dosage: 6 CYCLES OF R-CHOP CHEMOTHERAPY
     Route: 065
  19. PREDNISOLONE [Suspect]
     Indication: FOLLICLE CENTRE LYMPHOMA, FOLLICULAR GRADE I, II, III STAGE III
     Dosage: FOR 1W, THEN 10MG 2X DAILY; PART OF CAMP-C THERAPY
     Route: 065
  20. PREDNISOLONE [Suspect]
     Indication: FOLLICLE CENTRE LYMPHOMA, FOLLICULAR GRADE I, II, III RECURRENT
     Dosage: FOR 1W, THEN 10MG 2X DAILY; PART OF CAMP-C THERAPY
     Route: 065
  21. PREDNISOLONE [Suspect]
     Indication: FOLLICLE CENTRE LYMPHOMA, FOLLICULAR GRADE I, II, III STAGE III
     Dosage: FOR 1W, THEN 5MG 3X DAILY; PART OF CAMP-C THERAPY
     Route: 065
  22. PREDNISOLONE [Suspect]
     Indication: FOLLICLE CENTRE LYMPHOMA, FOLLICULAR GRADE I, II, III RECURRENT
     Dosage: FOR 1W, THEN 5MG 3X DAILY; PART OF CAMP-C THERAPY
     Route: 065
  23. PREDNISOLONE [Suspect]
     Indication: FOLLICLE CENTRE LYMPHOMA, FOLLICULAR GRADE I, II, III STAGE III
     Dosage: FOR 2W, THEN 5MG 2X DAILY; PART OF CAMP-C THERAPY
     Route: 065
  24. PREDNISOLONE [Suspect]
     Indication: FOLLICLE CENTRE LYMPHOMA, FOLLICULAR GRADE I, II, III RECURRENT
     Dosage: FOR 2W, THEN 5MG 2X DAILY; PART OF CAMP-C THERAPY
     Route: 065
  25. PREDNISOLONE [Suspect]
     Indication: FOLLICLE CENTRE LYMPHOMA, FOLLICULAR GRADE I, II, III STAGE III
     Dosage: PART OF CAMP-C THERAPY
     Route: 065
  26. PREDNISOLONE [Suspect]
     Indication: FOLLICLE CENTRE LYMPHOMA, FOLLICULAR GRADE I, II, III RECURRENT
     Dosage: PART OF CAMP-C THERAPY
     Route: 065
  27. RITUXIMAB [Suspect]
     Indication: FOLLICLE CENTRE LYMPHOMA, FOLLICULAR GRADE I, II, III RECURRENT
     Dosage: 6 CYCLES OF R-CHOP CHEMOTHERAPY; THEN 2 CYCLES OF MONOTHERAPY
     Route: 065
  28. RITUXIMAB [Suspect]
     Indication: FOLLICLE CENTRE LYMPHOMA, FOLLICULAR GRADE I, II, III RECURRENT
     Dosage: 2 CYCLES OF MONOTHERAPY
     Route: 065
  29. CLARITHROMYCIN [Suspect]
     Indication: FOLLICLE CENTRE LYMPHOMA, FOLLICULAR GRADE I, II, III RECURRENT
     Dosage: PART OF CAMP-C THERAPY
     Route: 065

REACTIONS (3)
  - Thrombocytopenia [Unknown]
  - Myelodysplastic syndrome [Unknown]
  - Pneumonia [Recovering/Resolving]
